FAERS Safety Report 11715199 (Version 1)
Quarter: 2015Q4

REPORT INFORMATION
  Report Type: Spontaneous
  Country: CH (occurrence: CH)
  Receive Date: 20151109
  Receipt Date: 20151109
  Transmission Date: 20160304
  Serious: Yes (Other)
  Sender: FDA-Public Use
  Company Number: CH-IMPAX LABORATORIES, INC-2015-IPXL-01101

PATIENT
  Age: 61 Year
  Sex: Male

DRUGS (2)
  1. BACLOFEN. [Suspect]
     Active Substance: BACLOFEN
     Indication: ALCOHOL ABUSE
     Dosage: 100 MG, 2 /DAY
     Route: 065
  2. BACLOFEN. [Suspect]
     Active Substance: BACLOFEN
     Dosage: 50 MG, 2 /DAY
     Route: 065

REACTIONS (3)
  - Road traffic accident [Unknown]
  - Sleep apnoea syndrome [Recovered/Resolved]
  - Off label use [Unknown]
